FAERS Safety Report 11213262 (Version 5)
Quarter: 2016Q4

REPORT INFORMATION
  Report Type: Spontaneous
  Country: CA (occurrence: CA)
  Receive Date: 20150623
  Receipt Date: 20161102
  Transmission Date: 20170206
  Serious: Yes (Other)
  Sender: FDA-Public Use
  Company Number: CA-GLAXOSMITHKLINE-A1015536A

PATIENT
  Age: 66 Year
  Sex: Female
  Weight: 80 kg

DRUGS (8)
  1. BENLYSTA [Suspect]
     Active Substance: BELIMUMAB
     Dosage: 650 MG, UNK
  2. AZATHIOPRINE. [Concomitant]
     Active Substance: AZATHIOPRINE
     Indication: PRODUCT USED FOR UNKNOWN INDICATION
     Dosage: UNK
  3. HYDROXYCHLOROQUINE [Concomitant]
     Active Substance: HYDROXYCHLOROQUINE
     Indication: PRODUCT USED FOR UNKNOWN INDICATION
     Dosage: 400 MG, UNK
     Route: 065
  4. PLAQUENIL [Concomitant]
     Active Substance: HYDROXYCHLOROQUINE SULFATE
     Indication: PRODUCT USED FOR UNKNOWN INDICATION
     Dosage: UNK
  5. METHOTREXATE. [Concomitant]
     Active Substance: METHOTREXATE
     Indication: PRODUCT USED FOR UNKNOWN INDICATION
     Dosage: UNK
  6. BENLYSTA [Suspect]
     Active Substance: BELIMUMAB
     Indication: SYSTEMIC LUPUS ERYTHEMATOSUS
     Dosage: 740 MG AT 0, 2, 4 WEEKS.  THEN EVERY 4 WEEKS.FOLLOW UP 30 APRIL2014: DOSE 670 MG
     Route: 042
     Dates: start: 20121127
  7. BENLYSTA [Suspect]
     Active Substance: BELIMUMAB
     Dosage: 650/4
  8. BENLYSTA [Suspect]
     Active Substance: BELIMUMAB
     Dosage: 660 MG, UNK

REACTIONS (10)
  - Pain [Recovered/Resolved]
  - Fatigue [Unknown]
  - Drug resistance [Unknown]
  - Sensitivity to weather change [Unknown]
  - Polyarthritis [Unknown]
  - Adverse event [Unknown]
  - Weight decreased [Unknown]
  - Bronchitis [Recovered/Resolved]
  - Pyrexia [Unknown]
  - Pneumonia [Unknown]

NARRATIVE: CASE EVENT DATE: 201508
